FAERS Safety Report 4544520-8 (Version None)
Quarter: 2004Q4

REPORT INFORMATION
  Report Type: 
  Country: None (occurrence: None)
  Receive Date: 20041230
  Receipt Date: 20041222
  Transmission Date: 20050328
  Serious: No
  Sender: FDA-Public Use
  Company Number: TAP2004Q01660

PATIENT
  Sex: Female

DRUGS (1)
  1. PREVACID [Suspect]
     Indication: ILL-DEFINED DISORDER
     Dosage: 30 MG, 1 IN 1 D, PER ORAL
     Route: 048

REACTIONS (2)
  - CARCINOID TUMOUR OF THE STOMACH [None]
  - HYPERGASTRINAEMIA [None]
